FAERS Safety Report 21797666 (Version 1)
Quarter: 2022Q4

REPORT INFORMATION
  Report Type: Spontaneous
  Country: US (occurrence: US)
  Receive Date: 20221230
  Receipt Date: 20221230
  Transmission Date: 20230113
  Serious: No
  Sender: FDA-Public Use
  Company Number: US-drreddys-SPO/USA/22/0158541

PATIENT
  Age: 73 Year
  Sex: Female

DRUGS (11)
  1. LENALIDOMIDE [Suspect]
     Active Substance: LENALIDOMIDE
     Indication: Plasma cell myeloma
     Dosage: TAKE 1 CAPSULE WHOLE BY MOUTH WITH WATER, W/ OR W/O FOOD, AROUND SAME TIME DAILY FOR 14 DAYS ON, 7 D
     Route: 048
     Dates: start: 20221024
  2. METOPROLOL SUCCINATE [Concomitant]
     Active Substance: METOPROLOL SUCCINATE
     Indication: Product used for unknown indication
  3. ACYCLOVIR TAB 800MG [Concomitant]
     Indication: Product used for unknown indication
  4. CYCLOBENZAPR TAB 10MG [Concomitant]
     Indication: Product used for unknown indication
  5. DARZALEX FAS SOL 1800-300 [Concomitant]
     Indication: Product used for unknown indication
     Dosage: 1800-300
  6. DEXAMETHASON TAB 6MG [Concomitant]
     Indication: Product used for unknown indication
  7. TYLENOL TAB 325MG [Concomitant]
     Indication: Product used for unknown indication
  8. BENADRYL ALLERGY [Concomitant]
     Active Substance: DIPHENHYDRAMINE HYDROCHLORIDE
     Indication: Product used for unknown indication
  9. LOSARTAN POT TAB 50MG [Concomitant]
     Indication: Product used for unknown indication
  10. OXYCODONE HC TAB 15MG [Concomitant]
     Indication: Product used for unknown indication
  11. XARELTO [Concomitant]
     Active Substance: RIVAROXABAN
     Indication: Product used for unknown indication

REACTIONS (2)
  - Product dose omission issue [Unknown]
  - Product administration interrupted [Unknown]
